FAERS Safety Report 9672180 (Version 1)
Quarter: 2013Q4

REPORT INFORMATION
  Report Type: Spontaneous
  Country: US (occurrence: US)
  Receive Date: 20131106
  Receipt Date: 20131106
  Transmission Date: 20140711
  Serious: No
  Sender: FDA-Public Use
  Company Number: US-ENDO PHARMACEUTICALS INC.-HCDA20130007

PATIENT
  Sex: Female
  Weight: 95.34 kg

DRUGS (1)
  1. HYDROCODONE/ACETAMINOPHEN 10MG/500MG [Suspect]
     Indication: DENTAL DISCOMFORT
     Dosage: 10/500 MG
     Route: 048
     Dates: start: 201209, end: 201212

REACTIONS (3)
  - Gallbladder non-functioning [Not Recovered/Not Resolved]
  - Trismus [Not Recovered/Not Resolved]
  - Epistaxis [Not Recovered/Not Resolved]
